FAERS Safety Report 4331220-2 (Version None)
Quarter: 2004Q1

REPORT INFORMATION
  Report Type: 
  Country: None (occurrence: None)
  Receive Date: 20040329
  Receipt Date: 20040317
  Transmission Date: 20041129
  Serious: Yes (Other)
  Sender: FDA-Public Use
  Company Number: 2004018447

PATIENT
  Age: 80 Year
  Sex: Female

DRUGS (1)
  1. LIPITOR [Suspect]
     Indication: BLOOD CHOLESTEROL INCREASED
     Dosage: 10 MG (DAILY), ORAL
     Route: 048

REACTIONS (5)
  - CHOKING [None]
  - COUGH [None]
  - DYSPNOEA [None]
  - SWELLING FACE [None]
  - THROAT TIGHTNESS [None]
